FAERS Safety Report 8397717-3 (Version None)
Quarter: 2012Q1

REPORT INFORMATION
  Report Type: 
  Country: None (occurrence: None)
  Receive Date: 20120323
  Receipt Date: 20110202
  Transmission Date: 20120608
  Serious: Yes (Hospitalization)
  Sender: FDA-Public Use
  Company Number: 163-21880-11011552

PATIENT
  Age: 85 Year
  Sex: Female

DRUGS (4)
  1. COUMADIN [Concomitant]
  2. REVLIMID [Suspect]
     Indication: MULTIPLE MYELOMA
     Dosage: 25 MG, DAILY, PO 10-15 MG, DAILY, PO 10 MG, DAILY, PO
     Route: 048
     Dates: start: 20101001
  3. REVLIMID [Suspect]
     Indication: MULTIPLE MYELOMA
     Dosage: 25 MG, DAILY, PO 10-15 MG, DAILY, PO 10 MG, DAILY, PO
     Route: 048
     Dates: start: 20090601
  4. REVLIMID [Suspect]
     Indication: MULTIPLE MYELOMA
     Dosage: 25 MG, DAILY, PO 10-15 MG, DAILY, PO 10 MG, DAILY, PO
     Route: 048
     Dates: start: 20090201

REACTIONS (1)
  - GASTROINTESTINAL HAEMORRHAGE [None]
